FAERS Safety Report 23222210 (Version 1)
Quarter: 2023Q4

REPORT INFORMATION
  Report Type: Spontaneous
  Country: US (occurrence: US)
  Receive Date: 20231123
  Receipt Date: 20231123
  Transmission Date: 20240110
  Serious: Yes (Other)
  Sender: FDA-Public Use
  Company Number: US-ALXN-202311USA001225US

PATIENT
  Age: 3 Year
  Sex: Male

DRUGS (18)
  1. SOLIRIS [Suspect]
     Active Substance: ECULIZUMAB
     Indication: Cartilage-hair hypoplasia
     Dosage: 600 MILLIGRAM
     Route: 065
     Dates: start: 20220516, end: 20230201
  2. SOLIRIS [Suspect]
     Active Substance: ECULIZUMAB
     Indication: Thrombotic microangiopathy
  3. SOLIRIS [Suspect]
     Active Substance: ECULIZUMAB
     Indication: Off label use
  4. CIDOFOVIR [Suspect]
     Active Substance: CIDOFOVIR
     Indication: Product used for unknown indication
     Dosage: 13.2 MILLIGRAM
     Route: 065
     Dates: start: 20220414, end: 20221012
  5. ZOVIRAX [Concomitant]
     Active Substance: ACYCLOVIR
     Indication: Product used for unknown indication
     Dosage: 6.3 MILLILITER (250 MG), TID
     Route: 048
     Dates: start: 20220527, end: 20220909
  6. KATERZIA [Concomitant]
     Active Substance: AMLODIPINE BENZOATE
     Indication: Product used for unknown indication
     Dosage: 2.5 MILLILITER (2.5 MG), BID
     Route: 048
     Dates: start: 20220513, end: 20220620
  7. CIPRO [Concomitant]
     Active Substance: CIPROFLOXACIN HYDROCHLORIDE
     Indication: Product used for unknown indication
     Dosage: 2.5 MILLILITER (250 MG), Q12H
     Route: 048
     Dates: start: 20220527, end: 20220610
  8. CYCLOSPORINE [Concomitant]
     Active Substance: CYCLOSPORINE
     Indication: Product used for unknown indication
     Dosage: 0.35 MILLILITER (35 MG), Q12H
     Route: 048
     Dates: start: 20220527, end: 20220701
  9. PERIACTIN [Concomitant]
     Active Substance: CYPROHEPTADINE HYDROCHLORIDE
     Indication: Product used for unknown indication
     Dosage: 0.5 DOSAGE FORM (2 MG), BID (WITH MEALS)
     Route: 048
     Dates: start: 20220527, end: 20220701
  10. PEPCID [Concomitant]
     Active Substance: FAMOTIDINE
     Indication: Product used for unknown indication
     Dosage: 0.8 MILLILITER (6.4 MG), BID
     Route: 048
     Dates: start: 20220210, end: 20220822
  11. VANCOMYCIN [Concomitant]
     Active Substance: VANCOMYCIN
     Indication: Product used for unknown indication
     Dosage: 2.5 MILLILITER (125 MG), QID SHAKE WELL, REFRIGERATE
     Route: 065
     Dates: start: 20220524, end: 20220603
  12. CORTEF [Concomitant]
     Active Substance: HYDROCORTISONE
     Indication: Product used for unknown indication
     Dosage: 0.5 DOSAGE FORM (2,5 MG), Q12H
     Route: 065
     Dates: start: 20220513, end: 20220627
  13. ARAVA [Concomitant]
     Active Substance: LEFLUNOMIDE
     Indication: Product used for unknown indication
     Dosage: 1 DOSAGE FORM (10 MG), QD
     Route: 048
     Dates: start: 20220412, end: 20220718
  14. ZOFRAN [Concomitant]
     Active Substance: ONDANSETRON HYDROCHLORIDE
     Indication: Product used for unknown indication
     Dosage: 2.5 MILLILITER (2 MG), TID
     Route: 048
     Dates: start: 20220210, end: 20220701
  15. K PHOS NEUTRAL [Concomitant]
     Active Substance: POTASSIUM PHOSPHATE, MONOBASIC\SODIUM PHOSPHATE, DIBASIC, ANHYDROUS\SODIUM PHOSPHATE, MONOBASIC, MON
     Indication: Product used for unknown indication
     Dosage: 1 DOSAGE FORM, TID WITH MEALS
     Route: 048
     Dates: start: 20220527, end: 20220701
  16. ORAPRED [Concomitant]
     Active Substance: PREDNISOLONE SODIUM PHOSPHATE
     Indication: Product used for unknown indication
     Dosage: 0.4 MILLILITER (1.2 MG), BID
     Route: 048
     Dates: start: 20220527, end: 20220626
  17. PHENERGAN [Concomitant]
     Active Substance: PROMETHAZINE HYDROCHLORIDE
     Indication: Nausea
     Dosage: 2.4 MILLILITER (3 MG), Q6H
     Route: 048
     Dates: start: 20220218, end: 20221003
  18. VFEND [Concomitant]
     Active Substance: VORICONAZOLE
     Indication: Product used for unknown indication
     Dosage: 3.5 MILLILITER (140 MG), TID
     Route: 048
     Dates: start: 20220513, end: 20220711

REACTIONS (6)
  - Clostridium difficile colitis [Unknown]
  - Off label use [Unknown]
  - Norovirus infection [Unknown]
  - Skin abrasion [Unknown]
  - Ankle fracture [Unknown]
  - Urinary tract infection [Unknown]

NARRATIVE: CASE EVENT DATE: 20220527
